FAERS Safety Report 15204402 (Version 1)
Quarter: 2018Q3

REPORT INFORMATION
  Report Type: Spontaneous
  Country: US (occurrence: US)
  Receive Date: 20180628
  Receipt Date: 20180628
  Transmission Date: 20181010
  Serious: No
  Sender: FDA-Public Use
  Company Number: None

PATIENT
  Age: 29 Year
  Sex: Female

DRUGS (1)
  1. OCREVUS [Suspect]
     Active Substance: OCRELIZUMAB
     Indication: MULTIPLE SCLEROSIS
     Dosage: OTHER FREQUENCY:Q 6 MONTHS ;?
     Route: 042
     Dates: start: 20171212

REACTIONS (2)
  - Vulval abscess [None]
  - Infection [None]

NARRATIVE: CASE EVENT DATE: 20180621
